FAERS Safety Report 12999643 (Version 1)
Quarter: 2016Q4

REPORT INFORMATION
  Report Type: Spontaneous
  Country: GR (occurrence: GR)
  Receive Date: 20161205
  Receipt Date: 20161205
  Transmission Date: 20170207
  Serious: Yes (Other)
  Sender: FDA-Public Use
  Company Number: GR-CELGENEUS-066-50794-14080869

PATIENT

DRUGS (4)
  1. VIDAZA [Suspect]
     Active Substance: AZACITIDINE
     Route: 065
  2. G-CSF [Concomitant]
     Active Substance: GRANULOCYTE COLONY-STIMULATING FACTOR NOS
     Indication: PRODUCT USED FOR UNKNOWN INDICATION
     Dosage: NOT PROVIDED
     Route: 065
  3. RBC [Concomitant]
     Active Substance: HUMAN RED BLOOD CELL
     Indication: PRODUCT USED FOR UNKNOWN INDICATION
     Dosage: TRANSFUSIONS
     Route: 065
  4. VIDAZA [Suspect]
     Active Substance: AZACITIDINE
     Indication: MYELODYSPLASTIC SYNDROME
     Dosage: NOT PROVIDED
     Route: 065

REACTIONS (24)
  - Abdominal pain upper [Unknown]
  - Neutropenia [Unknown]
  - Thrombocytopenia [Unknown]
  - General symptom [Unknown]
  - Hepatobiliary disease [Unknown]
  - Urinary tract infection [Unknown]
  - Haematochezia [Unknown]
  - Full blood count decreased [Unknown]
  - Febrile neutropenia [Unknown]
  - Gastrointestinal haemorrhage [Unknown]
  - Respiratory tract infection [Unknown]
  - Acute myeloid leukaemia [Unknown]
  - Gastrointestinal disorder [Unknown]
  - Infection [Unknown]
  - Skin disorder [Unknown]
  - Blood disorder [Unknown]
  - Musculoskeletal disorder [Unknown]
  - Anaemia [Unknown]
  - Leukopenia [Unknown]
  - Oral herpes [Unknown]
  - White blood cell count decreased [Unknown]
  - Pyrexia [Unknown]
  - Nervous system disorder [Unknown]
  - Constipation [Unknown]
